FAERS Safety Report 24592458 (Version 2)
Quarter: 2025Q2

REPORT INFORMATION
  Report Type: Spontaneous
  Country: PL (occurrence: PL)
  Receive Date: 20241108
  Receipt Date: 20250419
  Transmission Date: 20250717
  Serious: Yes (Other)
  Sender: AUROBINDO
  Company Number: PL-ROCHE-10000102702

PATIENT
  Age: 61 Year
  Sex: Male

DRUGS (10)
  1. OXALIPLATIN [Suspect]
     Active Substance: OXALIPLATIN
     Indication: Colorectal cancer metastatic
     Route: 065
     Dates: start: 202207
  2. OXALIPLATIN [Suspect]
     Active Substance: OXALIPLATIN
     Route: 065
     Dates: start: 202311
  3. BEVACIZUMAB [Suspect]
     Active Substance: BEVACIZUMAB
     Indication: Colorectal cancer metastatic
     Route: 065
     Dates: start: 202207
  4. CAPECITABINE [Suspect]
     Active Substance: CAPECITABINE
     Indication: Colorectal cancer metastatic
     Route: 065
     Dates: start: 202309
  5. LEUCOVORIN [Suspect]
     Active Substance: LEUCOVORIN\LEUCOVORIN CALCIUM
     Indication: Colorectal cancer metastatic
     Route: 065
     Dates: start: 202207
  6. LEUCOVORIN [Suspect]
     Active Substance: LEUCOVORIN\LEUCOVORIN CALCIUM
     Route: 065
     Dates: start: 202203
  7. ALECTINIB [Concomitant]
     Active Substance: ALECTINIB
     Indication: Colorectal cancer metastatic
     Route: 065
  8. REGORAFENIB [Concomitant]
     Active Substance: REGORAFENIB
     Indication: Colorectal cancer metastatic
     Route: 065
     Dates: start: 202302
  9. TRIFLURIDINE [Concomitant]
     Active Substance: TRIFLURIDINE
     Indication: Colorectal cancer metastatic
     Route: 065
     Dates: start: 202306
  10. TIPIRACIL [Concomitant]
     Active Substance: TIPIRACIL
     Indication: Colorectal cancer metastatic
     Route: 065
     Dates: start: 202306

REACTIONS (1)
  - Malignant neoplasm progression [Unknown]
